FAERS Safety Report 6742742-9 (Version None)
Quarter: 2010Q2

REPORT INFORMATION
  Report Type: 
  Country: None (occurrence: None)
  Receive Date: 20100526
  Receipt Date: 20100211
  Transmission Date: 20101027
  Serious: No
  Sender: FDA-Public Use
  Company Number: US-ABBOTT-10P-163-0626363-00

PATIENT
  Sex: Male
  Weight: 88.53 kg

DRUGS (4)
  1. ZEMPLAR [Suspect]
     Indication: RENAL DISORDER
     Route: 048
  2. ZEMPLAR [Suspect]
     Indication: BLOOD CREATINE ABNORMAL
  3. KAYEXALATE [Concomitant]
     Indication: DRUG USE FOR UNKNOWN INDICATION
  4. LIST OF UNKNOWN MEDICATIONS [Concomitant]
     Indication: DRUG USE FOR UNKNOWN INDICATION

REACTIONS (2)
  - BLOOD POTASSIUM INCREASED [None]
  - WEIGHT DECREASED [None]
